FAERS Safety Report 6184421-5 (Version None)
Quarter: 2009Q2

REPORT INFORMATION
  Report Type: 
  Country: None (occurrence: None)
  Receive Date: 20090508
  Receipt Date: 20090430
  Transmission Date: 20091009
  Serious: Yes (Hospitalization)
  Sender: FDA-Public Use
  Company Number: B0573162A

PATIENT
  Age: 78 Year
  Sex: Female

DRUGS (5)
  1. AUGMENTIN '125' [Suspect]
     Route: 048
     Dates: start: 20080216, end: 20090220
  2. SINTROM [Suspect]
     Indication: ATRIAL FIBRILLATION
     Route: 048
     Dates: start: 20080516, end: 20090220
  3. NOCTAMID [Suspect]
     Route: 048
     Dates: start: 20090130, end: 20090220
  4. UNKNOWN DRUG [Suspect]
     Route: 048
     Dates: start: 20090130, end: 20090220
  5. DEPAKENE [Concomitant]
     Indication: EPILEPSY
     Dosage: 500MG PER DAY
     Route: 048
     Dates: start: 19980101

REACTIONS (5)
  - COAGULOPATHY [None]
  - COUGH [None]
  - DISORIENTATION [None]
  - DYSPNOEA [None]
  - RESPIRATORY TRACT INFECTION [None]
